FAERS Safety Report 8966623 (Version 1)
Quarter: 2012Q4

REPORT INFORMATION
  Report Type: 
  Country: US (occurrence: US)
  Receive Date: 20121214
  Receipt Date: 20121214
  Transmission Date: 20130627
  Serious: No
  Sender: FDA-Public Use
  Company Number: US-PFIZER INC-2012317413

PATIENT
  Age: 62 Year
  Sex: Female

DRUGS (1)
  1. GABAPENTIN [Suspect]
     Dosage: UNK

REACTIONS (3)
  - Drug hypersensitivity [Unknown]
  - Nervousness [Unknown]
  - Vomiting [Unknown]
